FAERS Safety Report 8831159 (Version 1)
Quarter: 2012Q4

REPORT INFORMATION
  Report Type: 
  Country: US (occurrence: US)
  Receive Date: 20121008
  Receipt Date: 20121008
  Transmission Date: 20130627
  Serious: No
  Sender: FDA-Public Use
  Company Number: US-VERTEX PHARMACEUTICAL INC.-2012-021519

PATIENT
  Sex: Female

DRUGS (7)
  1. INCIVEK [Suspect]
     Indication: HEPATITIS C
     Dosage: 750 mg, tid
     Route: 048
     Dates: start: 20120713
  2. PEGASYS [Suspect]
     Indication: HEPATITIS C
     Dosage: 96 ?g, UNK
     Route: 058
     Dates: start: 20120713
  3. PEGASYS [Suspect]
     Dosage: 72 ?g, UNK
     Route: 058
     Dates: start: 20120910
  4. RIBAVIRIN [Suspect]
     Indication: HEPATITIS C
     Dosage: 400 mg in AM, 600 mg in PM
     Route: 048
     Dates: start: 20120713
  5. RIBAVIRIN [Suspect]
     Dosage: 200 mg in am, 400 mg in pm
     Route: 048
     Dates: start: 20120910
  6. NEUPOGEN [Concomitant]
  7. ARANESP [Concomitant]

REACTIONS (8)
  - Dizziness [Not Recovered/Not Resolved]
  - Cough [Not Recovered/Not Resolved]
  - Dyspnoea [Not Recovered/Not Resolved]
  - Haemoptysis [Not Recovered/Not Resolved]
  - White blood cell count decreased [Not Recovered/Not Resolved]
  - Productive cough [Not Recovered/Not Resolved]
  - Parosmia [Not Recovered/Not Resolved]
  - Platelet count decreased [Not Recovered/Not Resolved]
